FAERS Safety Report 9163567 (Version 1)
Quarter: 2013Q1

REPORT INFORMATION
  Report Type: Spontaneous
  Country: FR (occurrence: None)
  Receive Date: 20130221
  Receipt Date: 20130221
  Transmission Date: 20140127
  Serious: Yes (Hospitalization)
  Sender: FDA-Public Use
  Company Number: SYM-2013-00574

PATIENT
  Age: 88 Year
  Sex: 0

DRUGS (3)
  1. BI TILDIEM (DILTIAZEM HYDROCHLORIDE) (300 MILLIGRAM, UNKNOWN) (DILTIAZEM HYDROCHLORIDE) [Suspect]
     Indication: PRODUCT USED FOR UNKNOWN INDICATION
     Route: 048
     Dates: start: 2010, end: 20121118
  2. SELOKEN [Suspect]
     Indication: PRODUCT USED FOR UNKNOWN INDICATION
     Dosage: 0.5 DOSAGE FORMS, TWICE A DAY, ORAL
     Route: 048
     Dates: start: 201110, end: 20121118
  3. HEMIGOXINE [Suspect]
     Route: 048
     Dates: start: 2010, end: 20121118

REACTIONS (5)
  - Bradycardia [None]
  - Drug interaction [None]
  - Asthenia [None]
  - Dizziness [None]
  - Blood sodium decreased [None]
